APPROVED DRUG PRODUCT: HYCOFENIX
Active Ingredient: GUAIFENESIN; HYDROCODONE BITARTRATE; PSEUDOEPHEDRINE HYDROCHLORIDE
Strength: 200MG/5ML;2.5MG/5ML;30MG/5ML
Dosage Form/Route: SOLUTION;ORAL
Application: N022279 | Product #001
Applicant: CHARTWELL RX SCIENCES LLC
Approved: May 14, 2015 | RLD: Yes | RS: No | Type: DISCN